FAERS Safety Report 22041369 (Version 1)
Quarter: 2023Q1

REPORT INFORMATION
  Report Type: Spontaneous
  Country: US (occurrence: None)
  Receive Date: 20230224
  Receipt Date: 20230224
  Transmission Date: 20230417
  Serious: Yes (Hospitalization)
  Sender: FDA-Public Use
  Company Number: None

PATIENT
  Age: 63 Year
  Sex: Male

DRUGS (16)
  1. NUCALA [Suspect]
     Active Substance: MEPOLIZUMAB
     Indication: Asthma
     Dosage: FREQUENCY : MONTHLY;?
     Route: 058
     Dates: start: 20220621
  2. Methocarbanol [Concomitant]
  3. FLUTICASONE [Concomitant]
     Active Substance: FLUTICASONE
  4. METRONIDAZOLE [Concomitant]
     Active Substance: METRONIDAZOLE
  5. Neomycink [Concomitant]
  6. LEVOTHYROXINE [Concomitant]
     Active Substance: LEVOTHYROXINE
  7. TAMSULOSIN [Concomitant]
     Active Substance: TAMSULOSIN
  8. m Esomeprazole [Concomitant]
  9. ALBUTEROL SULFATE [Concomitant]
     Active Substance: ALBUTEROL SULFATE
  10. AMLODIPINE [Concomitant]
     Active Substance: AMLODIPINE BESYLATE
  11. ROSUVASTATIN [Concomitant]
     Active Substance: ROSUVASTATIN
  12. TESTOSTERONE CYPIONATE [Concomitant]
     Active Substance: TESTOSTERONE CYPIONATE
  13. MONTELUKAST [Concomitant]
     Active Substance: MONTELUKAST SODIUM
  14. DICLOFENAC [Concomitant]
     Active Substance: DICLOFENAC
  15. NITROGLYCERIN [Concomitant]
     Active Substance: NITROGLYCERIN
  16. IPRATROPIUM/ALBUTEROL [Concomitant]

REACTIONS (2)
  - Pneumonia [None]
  - SARS-CoV-2 test positive [None]

NARRATIVE: CASE EVENT DATE: 20230221
